FAERS Safety Report 17229505 (Version 1)
Quarter: 2019Q4

REPORT INFORMATION
  Report Type: Spontaneous
  Country: US (occurrence: US)
  Receive Date: 20191210
  Receipt Date: 20191210
  Transmission Date: 20200122
  Serious: Yes (Other)
  Sender: FDA-Public Use
  Company Number: None

PATIENT
  Age: 62 Year
  Sex: Female
  Weight: 95.25 kg

DRUGS (6)
  1. GABAPENTIN. [Concomitant]
     Active Substance: GABAPENTIN
  2. BACLOFEN. [Concomitant]
     Active Substance: BACLOFEN
  3. CHLORTHALIDONE. [Concomitant]
     Active Substance: CHLORTHALIDONE
  4. LISINOPRIL. [Concomitant]
     Active Substance: LISINOPRIL
  5. FLEXERIL [Concomitant]
     Active Substance: CYCLOBENZAPRINE HYDROCHLORIDE
  6. ALENDRONATE SODIUM. [Suspect]
     Active Substance: ALENDRONATE SODIUM
     Indication: OSTEOPOROSIS PROPHYLAXIS
     Dosage: ?          QUANTITY:4 DF DOSAGE FORM;?
     Route: 048
     Dates: start: 20190522, end: 20190902

REACTIONS (19)
  - Cellulitis [None]
  - Muscle spasms [None]
  - Joint noise [None]
  - Erythema [None]
  - Dry skin [None]
  - Asthenia [None]
  - Arthralgia [None]
  - Eye pain [None]
  - Peripheral swelling [None]
  - Bone pain [None]
  - Ocular hyperaemia [None]
  - Feeling hot [None]
  - Arthropathy [None]
  - Loss of personal independence in daily activities [None]
  - Vision blurred [None]
  - Musculoskeletal pain [None]
  - Pain in jaw [None]
  - Drug ineffective [None]
  - Osteogenesis imperfecta [None]

NARRATIVE: CASE EVENT DATE: 20190522
